FAERS Safety Report 25295020 (Version 4)
Quarter: 2025Q4

REPORT INFORMATION
  Report Type: Spontaneous
  Country: US (occurrence: US)
  Receive Date: 20250511
  Receipt Date: 20251123
  Transmission Date: 20260118
  Serious: Yes (Other)
  Sender: SANOFI AVENTIS
  Company Number: US-SA-2025SA125235

PATIENT
  Age: 9 Year
  Sex: Male

DRUGS (2)
  1. DUPIXENT [Suspect]
     Active Substance: DUPILUMAB
     Indication: Asthma
     Dosage: 200 MG, QOW
     Route: 058
     Dates: start: 20250301
  2. CEFDINIR [Suspect]
     Active Substance: CEFDINIR
     Dosage: UNK

REACTIONS (8)
  - Appendicectomy [Unknown]
  - Pharyngitis streptococcal [Unknown]
  - Abdominal pain [Unknown]
  - Ear infection [Unknown]
  - Dyspnoea [Unknown]
  - Therapeutic response shortened [Unknown]
  - Rash [Unknown]
  - Asthma [Unknown]

NARRATIVE: CASE EVENT DATE: 20250101
